FAERS Safety Report 7744677-1 (Version None)
Quarter: 2011Q3

REPORT INFORMATION
  Report Type: 
  Country: None (occurrence: None)
  Receive Date: 20110912
  Receipt Date: 20110907
  Transmission Date: 20111222
  Serious: Yes (Hospitalization, Other)
  Sender: FDA-Public Use
  Company Number: PHHY2011US62832

PATIENT
  Sex: Female

DRUGS (7)
  1. ALLOPURINOL [Concomitant]
     Dosage: 300 MG, UNK
     Route: 048
  2. GLEEVEC [Suspect]
     Dosage: 400 MG, UNK
     Route: 048
     Dates: end: 20110701
  3. BLOOD TRANSFUSION, AUXILIARY PRODUCTS [Concomitant]
  4. VITAMIN D [Concomitant]
     Dosage: 1000 MG, UNK
     Route: 048
  5. GLEEVEC [Suspect]
     Indication: CHRONIC MYELOID LEUKAEMIA
     Dosage: 400 MG, UNK
     Route: 048
     Dates: start: 20110614, end: 20110625
  6. SYNTHROID [Concomitant]
     Dosage: 25 UG, UNK
     Route: 048
  7. OMEPRAZOLE [Concomitant]
     Dosage: 20 MG, UNK
     Route: 048

REACTIONS (9)
  - RECTAL HAEMORRHAGE [None]
  - STOMATITIS [None]
  - HAEMOGLOBIN DECREASED [None]
  - EYE OEDEMA [None]
  - ACNE [None]
  - WHITE BLOOD CELL COUNT INCREASED [None]
  - STEVENS-JOHNSON SYNDROME [None]
  - MOUTH HAEMORRHAGE [None]
  - VAGINAL HAEMORRHAGE [None]
